FAERS Safety Report 7155998-8 (Version None)
Quarter: 2010Q4

REPORT INFORMATION
  Report Type: 
  Country: None (occurrence: None)
  Receive Date: 20101214
  Receipt Date: 20101208
  Transmission Date: 20110411
  Serious: Yes (Other)
  Sender: FDA-Public Use
  Company Number: DE-SANOFI-AVENTIS-2010SA071153

PATIENT
  Sex: Female
  Weight: 51 kg

DRUGS (5)
  1. MULTAQ [Suspect]
     Indication: ATRIAL FIBRILLATION
     Route: 048
     Dates: start: 20101027
  2. PREDNISOLONE [Concomitant]
     Indication: RHEUMATOID ARTHRITIS
     Route: 065
  3. EUTHYROX [Concomitant]
     Route: 065
  4. CETIRIZINE HCL [Concomitant]
     Route: 048
  5. RANITIDINE [Concomitant]
     Route: 065

REACTIONS (12)
  - CARDIAC FAILURE [None]
  - CHEST DISCOMFORT [None]
  - CONDITION AGGRAVATED [None]
  - COUGH [None]
  - DYSPNOEA [None]
  - FATIGUE [None]
  - GAIT DISTURBANCE [None]
  - NEURALGIA [None]
  - OEDEMA PERIPHERAL [None]
  - RESTLESSNESS [None]
  - SKIN FISSURES [None]
  - UNDERDOSE [None]
